FAERS Safety Report 15661239 (Version 1)
Quarter: 2018Q4

REPORT INFORMATION
  Report Type: Spontaneous
  Country: GB (occurrence: FR)
  Receive Date: 20181127
  Receipt Date: 20181127
  Transmission Date: 20190205
  Serious: Yes (Other)
  Sender: FDA-Public Use
  Company Number: FR-FRESENIUS KABI-FK201811858

PATIENT
  Age: 59 Year
  Sex: Male
  Weight: 82.8 kg

DRUGS (8)
  1. ENOXAPARIN SODIUM. [Concomitant]
     Active Substance: ENOXAPARIN SODIUM
  2. LEVOTHYROXINE SODIUM. [Concomitant]
     Active Substance: LEVOTHYROXINE SODIUM
  3. MORPHINE [Concomitant]
     Active Substance: MORPHINE
  4. PANTOPRAZOLE [Concomitant]
     Active Substance: PANTOPRAZOLE
  5. LINEZOLID 2 MG/ML [Suspect]
     Active Substance: LINEZOLID
     Indication: PERITONITIS
     Dosage: 1200MG/DAY
     Route: 041
     Dates: start: 20181006, end: 20181016
  6. PIPERACILLIN SODIUM/TAZOBACTAM SODIUM [Suspect]
     Active Substance: PIPERACILLIN SODIUM\TAZOBACTAM SODIUM
     Indication: PERITONITIS
     Route: 041
     Dates: start: 20180924, end: 20181008
  7. PARACETAMOL [Concomitant]
     Active Substance: ACETAMINOPHEN
  8. TRAMADOL HYDROCHLORIDE. [Concomitant]
     Active Substance: TRAMADOL HYDROCHLORIDE

REACTIONS (2)
  - Rash maculo-papular [Recovered/Resolved]
  - Eosinophilia [Recovered/Resolved]

NARRATIVE: CASE EVENT DATE: 20181010
